FAERS Safety Report 6148087-2 (Version None)
Quarter: 2009Q2

REPORT INFORMATION
  Report Type: 
  Country: None (occurrence: None)
  Receive Date: 20090408
  Receipt Date: 20090406
  Transmission Date: 20091009
  Serious: Yes (Other)
  Sender: FDA-Public Use
  Company Number: B0568932A

PATIENT
  Age: 57 Year
  Sex: Male

DRUGS (2)
  1. AUGMENTIN '125' [Suspect]
     Indication: DENTAL OPERATION
     Route: 048
     Dates: start: 20090326, end: 20090331
  2. LASIX [Concomitant]

REACTIONS (3)
  - DYSURIA [None]
  - PARAESTHESIA [None]
  - PHIMOSIS [None]
